FAERS Safety Report 6746888-0 (Version None)
Quarter: 2010Q2

REPORT INFORMATION
  Report Type: 
  Country: None (occurrence: None)
  Receive Date: 20100528
  Receipt Date: 20100112
  Transmission Date: 20101027
  Serious: No
  Sender: FDA-Public Use
  Company Number: US-ASTRAZENECA-2010SE01325

PATIENT
  Age: 73 Year
  Sex: Female

DRUGS (5)
  1. PRILOSEC OTC [Suspect]
     Route: 048
  2. PLAVIX [Interacting]
     Route: 065
  3. CRESTOR [Concomitant]
  4. GAVASCON [Concomitant]
     Indication: GASTROOESOPHAGEAL REFLUX DISEASE
  5. CALCIUM CARBONATE [Concomitant]
     Indication: OSTEOPENIA

REACTIONS (1)
  - ARTERIOSCLEROSIS [None]
